FAERS Safety Report 8262963-6 (Version None)
Quarter: 2012Q2

REPORT INFORMATION
  Report Type: 
  Country: None (occurrence: None)
  Receive Date: 20120405
  Receipt Date: 20120327
  Transmission Date: 20120825
  Serious: Yes (Hospitalization)
  Sender: FDA-Public Use
  Company Number: JP-MERCK-1203USA01270

PATIENT
  Age: 58 Year
  Sex: Male

DRUGS (4)
  1. COZAAR [Suspect]
     Dosage: THE DIVIDED DOSE FREQUENCY IS UNCERTAIN
     Route: 048
  2. CANDESARTAN [Concomitant]
     Route: 065
  3. CARDIOMIN (DOBUTAMINE HYDROCHLORIDE) [Concomitant]
     Dosage: 2 UG/KG/MIN - DAILY DOSE UNKNOWN
     Route: 042
  4. CARDIOMIN (DOBUTAMINE HYDROCHLORIDE) [Concomitant]
     Indication: CARDIAC FAILURE
     Dosage: 1 UG/KG/MIN - DAILY DOSE UNKNOWN
     Route: 042

REACTIONS (1)
  - CARDIAC FAILURE [None]
